FAERS Safety Report 20010988 (Version 3)
Quarter: 2021Q4

REPORT INFORMATION
  Report Type: Spontaneous
  Country: AR (occurrence: AR)
  Receive Date: 20211028
  Receipt Date: 20211124
  Transmission Date: 20220303
  Serious: No
  Sender: FDA-Public Use
  Company Number: AR-PFIZER INC-202101299653

PATIENT
  Age: 10 Year
  Sex: Male

DRUGS (1)
  1. GENOTROPIN [Suspect]
     Active Substance: SOMATROPIN
     Indication: Short stature
     Dosage: 1.5 TO 2 MG, 6 TIMES PER WEEK
     Dates: start: 20160718

REACTIONS (5)
  - Device power source issue [Not Recovered/Not Resolved]
  - Device information output issue [Not Recovered/Not Resolved]
  - Wrong technique in device usage process [Not Recovered/Not Resolved]
  - Dose calculation error [Not Recovered/Not Resolved]
  - Expired device used [Unknown]

NARRATIVE: CASE EVENT DATE: 20210901
